FAERS Safety Report 23681406 (Version 1)
Quarter: 2024Q1

REPORT INFORMATION
  Report Type: Spontaneous
  Country: DE (occurrence: DE)
  Receive Date: 20240328
  Receipt Date: 20240328
  Transmission Date: 20240409
  Serious: Yes (Hospitalization, Disabling, Other)
  Sender: FDA-Public Use
  Company Number: DE-TEVA-VS-3144187

PATIENT
  Age: 69 Year
  Sex: Male

DRUGS (4)
  1. AMIODARONE [Suspect]
     Active Substance: AMIODARONE
     Indication: Atrial fibrillation
     Dosage: 150 MILLIGRAM
     Route: 042
     Dates: start: 20231216
  2. MIDAZOLAM [Suspect]
     Active Substance: MIDAZOLAM
     Indication: Sedation
     Dosage: 4 MILLIGRAM (SINGLE DOSE)
     Route: 051
  3. CAFEDRINE HYDROCHLORIDE\THEODRENALINE [Suspect]
     Active Substance: CAFEDRINE HYDROCHLORIDE\THEODRENALINE
     Indication: Hypotension
     Dosage: 200 MILLIGRAM (10 MG/2 ML)
     Route: 065
  4. DEXTROSE [Concomitant]
     Active Substance: DEXTROSE\DEXTROSE MONOHYDRATE
     Indication: Vehicle solution use
     Dosage: 150 MILLILITER
     Route: 065

REACTIONS (6)
  - Necrosis ischaemic [Not Recovered/Not Resolved]
  - Wrong technique in product usage process [Unknown]
  - Dementia [Unknown]
  - Fall [Unknown]
  - Infarction [Unknown]
  - Cyanosis [Recovering/Resolving]

NARRATIVE: CASE EVENT DATE: 20231217
